FAERS Safety Report 8311532 (Version 5)
Quarter: 2012Q4

REPORT INFORMATION
  Report Type: 
  Country: TW (occurrence: TW)
  Receive Date: 20111227
  Receipt Date: 20121228
  Transmission Date: 20130627
  Serious: Yes (Hospitalization, Other)
  Sender: FDA-Public Use
  Company Number: TW-BAYER-2011-115993

PATIENT
  Age: 51 Year
  Sex: Female
  Weight: 49 kg

DRUGS (3)
  1. YAZ [Suspect]
     Indication: UTERINE MYOMA
     Dosage: UNK
     Route: 048
     Dates: start: 200906, end: 200908
  2. TRILEPTAL [Concomitant]
     Indication: SEIZURE
  3. IRON SUPPLEMENT [Concomitant]

REACTIONS (28)
  - Cerebral infarction [Recovered/Resolved with Sequelae]
  - Amnesia [Recovered/Resolved with Sequelae]
  - Dyslogia [Recovered/Resolved with Sequelae]
  - Hypoaesthesia [Recovered/Resolved with Sequelae]
  - Cerebral venous thrombosis [Recovered/Resolved with Sequelae]
  - Cerebral haemorrhage [Recovered/Resolved with Sequelae]
  - Dysphonia [None]
  - Depression [None]
  - Suicide attempt [None]
  - Partial seizures [Not Recovered/Not Resolved]
  - Memory impairment [Recovered/Resolved with Sequelae]
  - Aphasia [Recovered/Resolved with Sequelae]
  - Bone deformity [Recovered/Resolved]
  - Sensory loss [Recovered/Resolved with Sequelae]
  - Off label use [None]
  - Hemiparesis [Recovered/Resolved with Sequelae]
  - Headache [Recovered/Resolved with Sequelae]
  - Dizziness [Recovered/Resolved with Sequelae]
  - Dysarthria [Recovered/Resolved with Sequelae]
  - Clumsiness [Recovered/Resolved with Sequelae]
  - Abasia [Recovered/Resolved with Sequelae]
  - Speech disorder [Recovered/Resolved with Sequelae]
  - Apraxia [Recovered/Resolved with Sequelae]
  - VIIth nerve paralysis [Recovered/Resolved with Sequelae]
  - Somnolence [Recovered/Resolved with Sequelae]
  - Cerebellar syndrome [Recovered/Resolved with Sequelae]
  - Menorrhagia [Recovering/Resolving]
  - Brain oedema [Recovered/Resolved with Sequelae]
